FAERS Safety Report 6698135-6 (Version None)
Quarter: 2010Q2

REPORT INFORMATION
  Report Type: 
  Country: None (occurrence: None)
  Receive Date: 20100427
  Receipt Date: 20100415
  Transmission Date: 20101027
  Serious: Yes (Death, Hospitalization)
  Sender: FDA-Public Use
  Company Number: SK-PFIZER INC-2006038571

PATIENT
  Age: 66 Year
  Sex: Male
  Weight: 67 kg

DRUGS (11)
  1. SUNITINIB MALATE [Suspect]
     Indication: RENAL CANCER
     Dosage: 50 MG, 1X/DAY
     Route: 048
     Dates: start: 20060104, end: 20060118
  2. SUNITINIB MALATE [Suspect]
     Dosage: 37.5 MG, 1X/DAY
     Route: 048
     Dates: start: 20060125, end: 20060306
  3. FUROSEMID [Concomitant]
     Dosage: UNK
     Route: 048
     Dates: start: 20060125, end: 20060305
  4. VERAPAMIL [Concomitant]
     Dosage: UNK
     Route: 048
     Dates: start: 20060125
  5. MOLSIDOMINE [Concomitant]
     Dosage: UNK
     Route: 048
     Dates: start: 20060125
  6. METOCLOPRAMIDE HYDROCHLORIDE [Concomitant]
     Dosage: UNK
     Route: 048
     Dates: start: 20060104
  7. TRANDOLAPRIL [Concomitant]
     Dosage: UNK
     Route: 048
     Dates: start: 20050110
  8. SIMVASTATIN [Concomitant]
     Dosage: UNK
     Route: 048
     Dates: start: 20040101
  9. TRAZODONE HCL [Concomitant]
     Dosage: UNK
     Route: 048
     Dates: start: 20060315
  10. DIGOXIN [Concomitant]
     Dosage: UNK
     Route: 048
     Dates: start: 20060125
  11. CHLORPROMAZINE [Concomitant]
     Dosage: UNK
     Route: 048
     Dates: start: 20060120

REACTIONS (5)
  - DECREASED APPETITE [None]
  - DISEASE PROGRESSION [None]
  - FATIGUE [None]
  - RENAL CANCER [None]
  - VOMITING [None]
